FAERS Safety Report 6273059-7 (Version None)
Quarter: 2009Q3

REPORT INFORMATION
  Report Type: 
  Country: None (occurrence: None)
  Receive Date: 20090715
  Receipt Date: 20090715
  Transmission Date: 20100115
  Serious: Yes (Disabling)
  Sender: FDA-Public Use
  Company Number: None

PATIENT
  Age: 40 Year
  Sex: Female
  Weight: 114.3065 kg

DRUGS (3)
  1. TOPAMAX [Suspect]
     Indication: CONVULSION
     Dosage: 100 MG PO BID
     Route: 048
     Dates: start: 20090615, end: 20090701
  2. TEGRETOL-XR [Concomitant]
  3. NEURONTIN [Concomitant]

REACTIONS (5)
  - CONDITION AGGRAVATED [None]
  - CONVULSION [None]
  - FATIGUE [None]
  - PRODUCT SUBSTITUTION ISSUE [None]
  - SEDATION [None]
